FAERS Safety Report 6234451-X (Version None)
Quarter: 2009Q2

REPORT INFORMATION
  Report Type: 
  Country: None (occurrence: None)
  Receive Date: 20090615
  Receipt Date: 20090506
  Transmission Date: 20091009
  Serious: No
  Sender: FDA-Public Use
  Company Number: DSA_33601_2009

PATIENT
  Sex: Female

DRUGS (11)
  1. XENAZINE [Suspect]
     Indication: TARDIVE DYSKINESIA
     Dosage: (12.5 MG QD)
     Dates: start: 20090301
  2. WELLBUTRIN XL [Concomitant]
  3. COGENTIN [Concomitant]
  4. PLAVIX [Concomitant]
  5. TERAZOL /00871201/ [Concomitant]
  6. SERPRALINE [Concomitant]
  7. CHLORPHENIRAMANE/HYDROCODONE [Concomitant]
  8. OMEPRAZOLE [Concomitant]
  9. ESTRADIOL [Concomitant]
  10. OXYCONTIN [Concomitant]
  11. LORAZEPAM [Concomitant]

REACTIONS (1)
  - LETHARGY [None]
